FAERS Safety Report 7042185-7 (Version None)
Quarter: 2010Q4

REPORT INFORMATION
  Report Type: 
  Country: None (occurrence: None)
  Receive Date: 20101013
  Receipt Date: 20091207
  Transmission Date: 20110411
  Serious: No
  Sender: FDA-Public Use
  Company Number: US-ASTRAZENECA-2009SE30599

PATIENT
  Age: 48 Year
  Sex: Female
  Weight: 88.5 kg

DRUGS (5)
  1. SYMBICORT [Suspect]
     Indication: ASTHMA
     Dosage: 640 MCG
     Route: 055
     Dates: start: 20090901
  2. LYRICA [Concomitant]
     Indication: DEPRESSION
  3. CLONAZEPAM [Concomitant]
  4. AMITRIPTYLINE [Concomitant]
  5. ALBUTEROL [Concomitant]
     Indication: ASTHMA

REACTIONS (2)
  - HAIR GROWTH ABNORMAL [None]
  - WEIGHT INCREASED [None]
